FAERS Safety Report 6955899-1 (Version None)
Quarter: 2010Q3

REPORT INFORMATION
  Report Type: 
  Country: None (occurrence: None)
  Receive Date: 20100830
  Receipt Date: 20100824
  Transmission Date: 20110219
  Serious: Yes (Death)
  Sender: FDA-Public Use
  Company Number: JP-ROCHE-723808

PATIENT
  Sex: Male

DRUGS (7)
  1. ROCEPHIN [Suspect]
     Route: 042
     Dates: start: 20100607, end: 20100704
  2. ROCEPHIN [Suspect]
     Route: 042
     Dates: start: 20100705, end: 20100708
  3. ARTIST [Concomitant]
     Route: 048
     Dates: start: 20100605, end: 20100714
  4. LASIX [Concomitant]
     Route: 048
     Dates: start: 20100606, end: 20100614
  5. LASIX [Concomitant]
     Route: 048
     Dates: start: 20100615, end: 20100714
  6. LASIX [Concomitant]
     Route: 048
     Dates: start: 20100702, end: 20100714
  7. RENIVACE [Concomitant]
     Route: 048
     Dates: start: 20100615, end: 20100714

REACTIONS (4)
  - ACUTE RESPIRATORY DISTRESS SYNDROME [None]
  - AGRANULOCYTOSIS [None]
  - DISSEMINATED INTRAVASCULAR COAGULATION [None]
  - HEPATIC FUNCTION ABNORMAL [None]
